FAERS Safety Report 22651797 (Version 1)
Quarter: 2023Q2

REPORT INFORMATION
  Report Type: Report from Study
  Country: CA (occurrence: CA)
  Receive Date: 20230628
  Receipt Date: 20230628
  Transmission Date: 20230722
  Serious: Yes (Hospitalization, Other)
  Sender: FDA-Public Use
  Company Number: CA-GILEAD-2023-0616580

PATIENT
  Age: 36 Year
  Sex: Female

DRUGS (5)
  1. SACITUZUMAB GOVITECAN-HZIY [Suspect]
     Active Substance: SACITUZUMAB GOVITECAN-HZIY
     Indication: Triple negative breast cancer
     Dosage: 454 MG
     Route: 042
     Dates: start: 20230202, end: 20230209
  2. SACITUZUMAB GOVITECAN-HZIY [Suspect]
     Active Substance: SACITUZUMAB GOVITECAN-HZIY
     Dosage: 454 MG
     Route: 042
     Dates: start: 20230223, end: 20230223
  3. SACITUZUMAB GOVITECAN-HZIY [Suspect]
     Active Substance: SACITUZUMAB GOVITECAN-HZIY
     Dosage: 454 MG
     Route: 042
     Dates: start: 20230302
  4. NAPROXEN [Concomitant]
     Active Substance: NAPROXEN
     Dosage: UNK, PRN
  5. CAPECITABINE [Concomitant]
     Active Substance: CAPECITABINE

REACTIONS (14)
  - Haemoglobin decreased [Recovered/Resolved]
  - Disease progression [Not Recovered/Not Resolved]
  - Pruritus [Not Recovered/Not Resolved]
  - Decreased appetite [Recovering/Resolving]
  - Dry skin [Not Recovered/Not Resolved]
  - Body temperature increased [Recovered/Resolved]
  - Weight fluctuation [Not Recovered/Not Resolved]
  - Rash pruritic [Recovered/Resolved]
  - Anaemia [Unknown]
  - Heart rate increased [Not Recovered/Not Resolved]
  - Pruritus [Recovered/Resolved]
  - Red blood cell count decreased [Not Recovered/Not Resolved]
  - Pruritus [Not Recovered/Not Resolved]
  - Perihepatic discomfort [Recovering/Resolving]

NARRATIVE: CASE EVENT DATE: 20230201
